FAERS Safety Report 12579901 (Version 3)
Quarter: 2016Q4

REPORT INFORMATION
  Report Type: Spontaneous
  Country: US (occurrence: US)
  Receive Date: 20160721
  Receipt Date: 20161102
  Transmission Date: 20170207
  Serious: No
  Sender: FDA-Public Use
  Company Number: US-ACTELION-A-US2016-139124

PATIENT
  Age: 68 Year
  Sex: Female

DRUGS (10)
  1. UPTRAVI [Suspect]
     Active Substance: SELEXIPAG
     Indication: PULMONARY ARTERIAL HYPERTENSION
     Dosage: UNK
     Route: 048
     Dates: end: 20160709
  2. ADCIRCA [Concomitant]
     Active Substance: TADALAFIL
  3. TYVASO [Concomitant]
     Active Substance: TREPROSTINIL
  4. AMLODIPINE [Concomitant]
     Active Substance: AMLODIPINE BESYLATE
  5. AMBRISENTAN [Suspect]
     Active Substance: AMBRISENTAN
     Indication: PRODUCT USED FOR UNKNOWN INDICATION
     Dosage: 10 MG, QD
     Route: 065
  6. WARFARIN [Concomitant]
     Active Substance: WARFARIN
  7. VENTAVIS [Suspect]
     Active Substance: ILOPROST
     Indication: PULMONARY ARTERIAL HYPERTENSION
     Dosage: 2.5 MCG, 6-9X/DAILY
     Route: 055
     Dates: start: 20160623
  8. SILDENAFIL. [Concomitant]
     Active Substance: SILDENAFIL
  9. DILTIAZEM. [Concomitant]
     Active Substance: DILTIAZEM
  10. VENTAVIS [Suspect]
     Active Substance: ILOPROST
     Dosage: 5 MCG, 6-9X/DAILY
     Route: 055
     Dates: start: 20160623

REACTIONS (11)
  - Therapy non-responder [Unknown]
  - Swelling [Unknown]
  - Abdominal discomfort [Unknown]
  - Dyspnoea exertional [Unknown]
  - Paranasal sinus discomfort [Unknown]
  - Peripheral swelling [Recovering/Resolving]
  - Facial pain [Unknown]
  - Arthralgia [Unknown]
  - Nausea [Unknown]
  - Sinus disorder [Unknown]
  - Headache [Unknown]
